FAERS Safety Report 10041945 (Version 7)
Quarter: 2014Q2

REPORT INFORMATION
  Report Type: Report from Study
  Country: US (occurrence: US)
  Receive Date: 20140327
  Receipt Date: 20140612
  Transmission Date: 20141212
  Serious: Yes (Hospitalization)
  Sender: FDA-Public Use
  Company Number: US-PFIZER INC-2014068783

PATIENT
  Age: 66 Year
  Sex: Female
  Weight: 89.62 kg

DRUGS (6)
  1. TOFACITINIB CITRATE [Suspect]
     Indication: RHEUMATOID ARTHRITIS
     Dosage: 10 MG, 2X/DAY
     Route: 048
     Dates: start: 20120112, end: 20140305
  2. LISINOPRIL [Concomitant]
     Indication: HYPERTENSION
     Dosage: 30 MG, 1X/DAY
     Route: 048
     Dates: start: 20120613
  3. MELOXICAM [Concomitant]
     Indication: RHEUMATOID ARTHRITIS
     Dosage: 1 DF (TAB), 1X/DAY
     Route: 048
     Dates: start: 201108
  4. ALBUTEROL [Concomitant]
     Indication: ASTHMA
     Dosage: ROUTE: INH, AS NEEDED
     Route: 055
     Dates: start: 2009
  5. FOLIC ACID [Concomitant]
     Indication: RHEUMATOID ARTHRITIS
     Dosage: 1 MG, 1X/DAY
     Route: 048
     Dates: start: 2010
  6. MTX [Concomitant]
     Indication: RHEUMATOID ARTHRITIS
     Dosage: 20 MG, WEEKLY
     Route: 048
     Dates: start: 2000, end: 20140305

REACTIONS (1)
  - Colitis ischaemic [Recovered/Resolved]
